FAERS Safety Report 10243267 (Version 1)
Quarter: 2014Q2

REPORT INFORMATION
  Report Type: Spontaneous
  Country: DK (occurrence: DK)
  Receive Date: 20140618
  Receipt Date: 20140618
  Transmission Date: 20141212
  Serious: Yes (Hospitalization)
  Sender: FDA-Public Use
  Company Number: DK-JNJFOC-20140608278

PATIENT
  Age: 38 Year
  Sex: Female

DRUGS (6)
  1. REMICADE [Suspect]
     Indication: CROHN^S DISEASE
     Dosage: 310
     Route: 042
     Dates: start: 20110826, end: 20140512
  2. REMICADE [Suspect]
     Indication: CROHN^S DISEASE
     Dosage: 310
     Route: 042
     Dates: start: 20060316, end: 20070424
  3. REMICADE [Suspect]
     Indication: CROHN^S DISEASE
     Dosage: 310
     Route: 042
     Dates: start: 20081203, end: 201008
  4. IMUREL [Suspect]
     Indication: CROHN^S DISEASE
     Route: 065
     Dates: start: 20021106
  5. ALLOPURINOL [Concomitant]
     Route: 065
  6. LINDYNETTE [Concomitant]
     Indication: CONTRACEPTION
     Route: 065

REACTIONS (4)
  - Secretion discharge [Unknown]
  - Central nervous system lesion [Recovering/Resolving]
  - Convulsion [Unknown]
  - Tongue biting [Unknown]
